FAERS Safety Report 6900490-6 (Version None)
Quarter: 2010Q3

REPORT INFORMATION
  Report Type: 
  Country: None (occurrence: None)
  Receive Date: 20100803
  Receipt Date: 20100722
  Transmission Date: 20110219
  Serious: Yes (Death)
  Sender: FDA-Public Use
  Company Number: GB-PFIZER INC-2010092371

PATIENT
  Age: 49 Year
  Sex: Male
  Weight: 88.2 kg

DRUGS (5)
  1. SERTRALINE HYDROCHLORIDE [Suspect]
     Indication: DEPRESSION
     Dosage: 100 MG, UNK
     Route: 048
     Dates: start: 20091022
  2. ATROVENT [Concomitant]
     Dosage: 2 DF, AS NEEDED
     Route: 055
     Dates: start: 20071122
  3. DESLORATADINE [Concomitant]
     Dosage: 5 MG, 1X/DAY
     Route: 048
     Dates: start: 20080707
  4. QVAR 40 [Concomitant]
     Dosage: 100 UG, 1X/DAY
     Route: 055
     Dates: start: 20070312
  5. SEREVENT [Concomitant]
     Dosage: 100 UG, 2X/DAY
     Route: 055
     Dates: start: 20070215

REACTIONS (1)
  - SUBARACHNOID HAEMORRHAGE [None]
